FAERS Safety Report 8158719-5 (Version None)
Quarter: 2012Q1

REPORT INFORMATION
  Report Type: 
  Country: None (occurrence: None)
  Receive Date: 20120223
  Receipt Date: 20120214
  Transmission Date: 20120608
  Serious: Yes (Hospitalization, Other)
  Sender: FDA-Public Use
  Company Number: CA-JNJFOC-20120207560

PATIENT
  Sex: Female
  Weight: 76.2 kg

DRUGS (2)
  1. REMICADE [Suspect]
     Indication: CROHN'S DISEASE
     Route: 042
     Dates: start: 20100829
  2. PREDNISONE [Concomitant]
     Route: 048

REACTIONS (3)
  - PARAESTHESIA [None]
  - VAGINAL HAEMORRHAGE [None]
  - ABDOMINAL PAIN [None]
